FAERS Safety Report 8115434-1 (Version None)
Quarter: 2012Q1

REPORT INFORMATION
  Report Type: 
  Country: None (occurrence: None)
  Receive Date: 20120206
  Receipt Date: 20120123
  Transmission Date: 20120608
  Serious: Yes (Other)
  Sender: FDA-Public Use
  Company Number: US-ELI_LILLY_AND_COMPANY-US201111000136

PATIENT
  Sex: Female

DRUGS (6)
  1. CYMBALTA [Suspect]
     Dosage: 60 MG, QD
     Route: 048
     Dates: start: 20110401, end: 20111101
  2. CYMBALTA [Suspect]
     Dosage: 60 MG, QD
  3. IMODIUM [Concomitant]
     Indication: DIARRHOEA
  4. CYMBALTA [Suspect]
     Dosage: 60 MG, QOD
     Route: 048
     Dates: start: 20111001
  5. CYMBALTA [Suspect]
     Indication: DEPRESSION
     Dosage: 30 MG, QD
     Route: 048
     Dates: start: 20110303
  6. XANAX                                   /USA/ [Concomitant]

REACTIONS (17)
  - DEPRESSED MOOD [None]
  - DIARRHOEA [None]
  - DRUG WITHDRAWAL SYNDROME [None]
  - HAEMATOMA [None]
  - CYST [None]
  - ANXIETY [None]
  - LOSS OF CONSCIOUSNESS [None]
  - LACERATION [None]
  - BACK PAIN [None]
  - FALL [None]
  - HEAD INJURY [None]
  - DIVERTICULITIS [None]
  - CRYING [None]
  - CONCUSSION [None]
  - IRRITABLE BOWEL SYNDROME [None]
  - TINNITUS [None]
  - INTENTIONAL DRUG MISUSE [None]
